FAERS Safety Report 7584072-1 (Version None)
Quarter: 2011Q2

REPORT INFORMATION
  Report Type: 
  Country: None (occurrence: None)
  Receive Date: 20110630
  Receipt Date: 20110626
  Transmission Date: 20111010
  Serious: Yes (Other)
  Sender: FDA-Public Use
  Company Number: ES-MERCK-1106ESP00088

PATIENT
  Age: 50 Year
  Sex: Female

DRUGS (1)
  1. NOROXIN [Suspect]
     Indication: URINARY TRACT INFECTION
     Route: 048

REACTIONS (3)
  - RASH MACULO-PAPULAR [None]
  - SKIN EXFOLIATION [None]
  - RASH ERYTHEMATOUS [None]
